FAERS Safety Report 14199139 (Version 1)
Quarter: 2017Q4

REPORT INFORMATION
  Report Type: Report from Study
  Country: BR (occurrence: BR)
  Receive Date: 20171117
  Receipt Date: 20171117
  Transmission Date: 20180321
  Serious: Yes (Hospitalization, Other)
  Sender: FDA-Public Use
  Company Number: PHHY2017BR168619

PATIENT
  Sex: Female
  Weight: 59.7 kg

DRUGS (3)
  1. SPIRIVA [Suspect]
     Active Substance: TIOTROPIUM BROMIDE MONOHYDRATE
     Indication: PRODUCT USED FOR UNKNOWN INDICATION
     Route: 065
  2. ALENIA [Suspect]
     Active Substance: BUDESONIDE\FORMOTEROL FUMARATE
     Indication: EMPHYSEMA
     Dosage: UNK UNK, Q12H
     Route: 048
  3. FORASEQ [Suspect]
     Active Substance: BUDESONIDE\FORMOTEROL FUMARATE
     Indication: EMPHYSEMA
     Dosage: 1 DF (BUDESONIDE 400 UG, FORMOTEROL FUMARATE 12 UG), Q12H
     Route: 065
     Dates: start: 2008

REACTIONS (12)
  - Pneumonia [Unknown]
  - Drug intolerance [Unknown]
  - Gait disturbance [Not Recovered/Not Resolved]
  - Drug dependence [Unknown]
  - Malaise [Unknown]
  - Obstructive airways disorder [Unknown]
  - Myocardial infarction [Unknown]
  - Lung disorder [Unknown]
  - Sneezing [Unknown]
  - Speech disorder [Unknown]
  - Dyspnoea [Not Recovered/Not Resolved]
  - Product use in unapproved indication [Unknown]
